FAERS Safety Report 17520002 (Version 2)
Quarter: 2020Q2

REPORT INFORMATION
  Report Type: Spontaneous
  Country: GB (occurrence: GB)
  Receive Date: 20200310
  Receipt Date: 20200401
  Transmission Date: 20200713
  Serious: Yes (Other)
  Sender: FDA-Public Use
  Company Number: GB-009507513-2003GBR002393

PATIENT
  Sex: Male

DRUGS (1)
  1. MOMETASONE FUROATE. [Suspect]
     Active Substance: MOMETASONE FUROATE
     Indication: PRODUCT USED FOR UNKNOWN INDICATION
     Dosage: 50 UG/DOSE
     Route: 065

REACTIONS (3)
  - Device difficult to use [Unknown]
  - Muscular weakness [Unknown]
  - Neuropathy peripheral [Unknown]
